FAERS Safety Report 24897675 (Version 1)
Quarter: 2025Q1

REPORT INFORMATION
  Report Type: Spontaneous
  Country: JP (occurrence: JP)
  Receive Date: 20250129
  Receipt Date: 20250129
  Transmission Date: 20250409
  Serious: Yes (Other)
  Sender: SANDOZ
  Company Number: JP-002147023-NVSJ2023JP010830

PATIENT

DRUGS (2)
  1. IMATINIB [Interacting]
     Active Substance: IMATINIB
     Indication: Product used for unknown indication
     Route: 048
  2. TACROLIMUS [Interacting]
     Active Substance: TACROLIMUS
     Indication: Product used for unknown indication
     Route: 065

REACTIONS (5)
  - Glomerular filtration rate decreased [Unknown]
  - Renal impairment [Unknown]
  - Oliguria [Unknown]
  - Weight increased [Unknown]
  - Drug interaction [Unknown]
